FAERS Safety Report 4993249-0 (Version None)
Quarter: 2006Q1

REPORT INFORMATION
  Report Type: 
  Country: None (occurrence: None)
  Receive Date: 20060314
  Receipt Date: 20050629
  Transmission Date: 20060701
  Serious: Yes (Other)
  Sender: FDA-Public Use
  Company Number: 200510307BCC

PATIENT
  Age: 57 Year
  Sex: Female

DRUGS (1)
  1. ALEVE [Suspect]
     Dosage: ORAL
     Route: 048

REACTIONS (5)
  - ANAPHYLACTIC SHOCK [None]
  - BLOOD PRESSURE DECREASED [None]
  - DYSPNOEA [None]
  - HYPERSENSITIVITY [None]
  - RASH PRURITIC [None]
